FAERS Safety Report 15695768 (Version 1)
Quarter: 2018Q4

REPORT INFORMATION
  Report Type: Spontaneous
  Country: IT (occurrence: IT)
  Receive Date: 20181206
  Receipt Date: 20181206
  Transmission Date: 20190205
  Serious: Yes (Congenital Anomaly)
  Sender: FDA-Public Use
  Company Number: IT-FRESENIUS KABI-FK201812225

PATIENT
  Age: 22 Month
  Sex: Male

DRUGS (4)
  1. PACLITAXEL (MANUFACTURER UNKNOWN) [Suspect]
     Active Substance: PACLITAXEL
     Indication: MATERNAL EXPOSURE DURING PREGNANCY
     Route: 064
  2. 5-FU [Concomitant]
     Active Substance: FLUOROURACIL
     Indication: MATERNAL EXPOSURE DURING PREGNANCY
     Route: 064
  3. CISPLATIN. [Concomitant]
     Active Substance: CISPLATIN
     Route: 065
  4. CISPLATIN. [Concomitant]
     Active Substance: CISPLATIN
     Indication: MATERNAL EXPOSURE DURING PREGNANCY
     Route: 064

REACTIONS (2)
  - Foetal exposure during pregnancy [Recovered/Resolved]
  - Acute myeloid leukaemia [Recovered/Resolved]
